FAERS Safety Report 5812232-6 (Version None)
Quarter: 2008Q3

REPORT INFORMATION
  Report Type: 
  Country: None (occurrence: None)
  Receive Date: 20080716
  Receipt Date: 20080709
  Transmission Date: 20090109
  Serious: Yes (Other)
  Sender: FDA-Public Use
  Company Number: ES-MERCK-0806ESP00030

PATIENT
  Age: 60 Year
  Sex: Female

DRUGS (1)
  1. FOSAMAX PLUS D [Suspect]
     Route: 048
     Dates: start: 20080512, end: 20080512

REACTIONS (2)
  - HYPERTENSIVE CRISIS [None]
  - LARYNGEAL OEDEMA [None]
